FAERS Safety Report 24724053 (Version 1)
Quarter: 2024Q4

REPORT INFORMATION
  Report Type: Spontaneous
  Country: US (occurrence: US)
  Receive Date: 20241211
  Receipt Date: 20241211
  Transmission Date: 20250115
  Serious: No
  Sender: SANOFI AVENTIS
  Company Number: US-SA-2024SA362691

PATIENT
  Age: 57 Year
  Sex: Female

DRUGS (1)
  1. KEVZARA [Suspect]
     Active Substance: SARILUMAB
     Indication: Still^s disease
     Dosage: 200 MG, QOW
     Dates: start: 202408, end: 2024

REACTIONS (5)
  - Condition aggravated [Unknown]
  - Pyrexia [Unknown]
  - Arthritis [Unknown]
  - Oropharyngeal pain [Unknown]
  - Product use in unapproved indication [Unknown]

NARRATIVE: CASE EVENT DATE: 20240101
